FAERS Safety Report 8321730-5 (Version None)
Quarter: 2012Q2

REPORT INFORMATION
  Report Type: 
  Country: None (occurrence: None)
  Receive Date: 20120430
  Receipt Date: 20120423
  Transmission Date: 20120825
  Serious: Yes (Hospitalization)
  Sender: FDA-Public Use
  Company Number: US-EISAI INC-E7389-02301-CLI-US

PATIENT
  Sex: Female
  Weight: 81 kg

DRUGS (5)
  1. KLONOPIN [Concomitant]
  2. HERCEPTIN [Concomitant]
     Indication: BREAST CANCER
     Route: 041
     Dates: start: 20120208
  3. RISPERDAL [Concomitant]
  4. EPIRUBICIN HYDROCHLORIDE [Suspect]
     Indication: BREAST CANCER
     Route: 041
     Dates: start: 20120208
  5. CARBOPLATIN [Suspect]
     Indication: BREAST CANCER
     Route: 041
     Dates: start: 20120208

REACTIONS (2)
  - PULMONARY EMBOLISM [None]
  - ANAEMIA [None]
